FAERS Safety Report 6968457-X (Version None)
Quarter: 2010Q3

REPORT INFORMATION
  Report Type: 
  Country: None (occurrence: None)
  Receive Date: 20100907
  Receipt Date: 20100826
  Transmission Date: 20110219
  Serious: Yes (Hospitalization)
  Sender: FDA-Public Use
  Company Number: PHHY2010TW56779

PATIENT
  Sex: Male
  Weight: 145.13 kg

DRUGS (3)
  1. NEORAL [Suspect]
     Indication: LIVER TRANSPLANT
     Dosage: 100 MG/DAY
     Route: 048
     Dates: start: 20100721
  2. TEICOPLANIN [Concomitant]
  3. CEFTAZIDIME [Concomitant]

REACTIONS (4)
  - ASCITES [None]
  - COMPLICATIONS OF TRANSPLANTED LIVER [None]
  - PYREXIA [None]
  - RENAL FAILURE [None]
